FAERS Safety Report 9505990 (Version 1)
Quarter: 2013Q1

REPORT INFORMATION
  Report Type: Spontaneous
  Country: US (occurrence: None)
  Receive Date: 20130225
  Receipt Date: 20130225
  Transmission Date: 20140127
  Serious: No
  Sender: FDA-Public Use
  Company Number: 367385

PATIENT
  Sex: Male

DRUGS (4)
  1. VICTOZA [Suspect]
     Indication: PRODUCT USED FOR UNKNOWN INDICATION
     Route: 058
  2. PERTUSSIS VACCINE (PERTUSSIS VACCINE) [Concomitant]
  3. LEVEMIR (INSULIN DETEMIR) SOLUTION FOR INJECTION, 0.0024 MOL/L [Concomitant]
  4. METFORMIN (METFORMIN) [Concomitant]

REACTIONS (2)
  - Injection site pain [None]
  - Injection site swelling [None]
